FAERS Safety Report 9560207 (Version 2)
Quarter: 2013Q4

REPORT INFORMATION
  Report Type: Spontaneous
  Country: US (occurrence: US)
  Receive Date: 20130927
  Receipt Date: 20131126
  Transmission Date: 20140711
  Serious: Yes (Other)
  Sender: FDA-Public Use
  Company Number: US-BAYER-2013-114968

PATIENT
  Age: 41 Year
  Sex: Female
  Weight: 73 kg

DRUGS (3)
  1. MIRENA [Suspect]
     Indication: DYSMENORRHOEA
     Dosage: 20 MCG/24HR, CONT
     Route: 015
     Dates: start: 20080618, end: 20130925
  2. MIRENA [Suspect]
     Indication: CONTRACEPTION
  3. ANAMANTLE HC [Concomitant]
     Indication: HAEMORRHOIDS

REACTIONS (3)
  - Pregnancy with contraceptive device [None]
  - Abortion missed [None]
  - Device misuse [None]
